FAERS Safety Report 8759461 (Version 1)
Quarter: 2012Q4

REPORT INFORMATION
  Report Type: 
  Country: US (occurrence: US)
  Receive Date: 20120829
  Receipt Date: 20120829
  Transmission Date: 20130627
  Serious: No
  Sender: FDA-Public Use
  Company Number: US-BAYER-2012-087787

PATIENT
  Age: 60 Year
  Sex: Female
  Weight: 82 kg

DRUGS (3)
  1. ALEVE CAPLET/TABLET,MIDOL EXTENDED RELIEF CAPLET [Suspect]
     Indication: ARTHRITIS
     Dosage: 2 DF, UNK
     Dates: start: 20120818, end: 20120818
  2. ALEVE CAPLET/TABLET,MIDOL EXTENDED RELIEF CAPLET [Suspect]
     Indication: ARTHRITIS
     Dosage: 1 DF, PRN
     Route: 048
     Dates: end: 20120818
  3. ALEVE CAPLET/TABLET,MIDOL EXTENDED RELIEF CAPLET [Suspect]
     Indication: ARTHRITIS
     Dosage: 1 DF, QD over past couple of months
     Route: 048

REACTIONS (1)
  - Swollen tongue [Not Recovered/Not Resolved]
